FAERS Safety Report 20806930 (Version 3)
Quarter: 2022Q3

REPORT INFORMATION
  Report Type: Spontaneous
  Country: US (occurrence: US)
  Receive Date: 20220510
  Receipt Date: 20220706
  Transmission Date: 20221027
  Serious: No
  Sender: FDA-Public Use
  Company Number: US-BIOGEN-2022BI01121203

PATIENT
  Sex: Female

DRUGS (10)
  1. PLEGRIDY [Suspect]
     Active Substance: PEGINTERFERON BETA-1A
     Indication: Multiple sclerosis
     Route: 050
     Dates: start: 20160902
  2. WARFARIN SODIUM [Concomitant]
     Active Substance: WARFARIN SODIUM
     Route: 050
  3. DIAZEPAM [Concomitant]
     Active Substance: DIAZEPAM
     Route: 050
  4. LIPITOR [Concomitant]
     Active Substance: ATORVASTATIN CALCIUM
     Route: 050
  5. ALLOPURINOL [Concomitant]
     Active Substance: ALLOPURINOL
     Route: 050
  6. METHOTREXATE [Concomitant]
     Active Substance: METHOTREXATE
     Route: 050
  7. TRIAMTERENE [Concomitant]
     Active Substance: TRIAMTERENE
     Route: 050
  8. TYLENOL [Concomitant]
     Active Substance: ACETAMINOPHEN
     Route: 050
  9. FOLIC ACID [Concomitant]
     Active Substance: FOLIC ACID
     Route: 050
  10. ATORVASTATIN CALCIUM [Concomitant]
     Active Substance: ATORVASTATIN CALCIUM
     Route: 050

REACTIONS (3)
  - Inappropriate schedule of product administration [Unknown]
  - Drug ineffective [Unknown]
  - Multiple sclerosis [Unknown]
